FAERS Safety Report 4905470-8 (Version None)
Quarter: 2006Q1

REPORT INFORMATION
  Report Type: 
  Country: None (occurrence: None)
  Receive Date: 20060203
  Receipt Date: 20060124
  Transmission Date: 20060701
  Serious: Yes (Other)
  Sender: FDA-Public Use
  Company Number: HQWYE388717JAN06

PATIENT
  Sex: Female

DRUGS (1)
  1. EFFEXOR XR [Suspect]
     Dosage: ORAL; ^SOME TIME^
     Route: 048

REACTIONS (2)
  - SUPRAVENTRICULAR TACHYCARDIA [None]
  - WOLFF-PARKINSON-WHITE SYNDROME [None]
